FAERS Safety Report 9224728 (Version 1)
Quarter: 2013Q2

REPORT INFORMATION
  Report Type: Spontaneous
  Country: US (occurrence: None)
  Receive Date: 20130409
  Receipt Date: 20130409
  Transmission Date: 20140414
  Serious: Yes (Other)
  Sender: FDA-Public Use
  Company Number: None

PATIENT
  Age: 20 Year
  Sex: Male
  Weight: 86.18 kg

DRUGS (2)
  1. QUETIAPINE [Suspect]
     Indication: AUTISM
     Dosage: 300MG 2 TABS AT 800PM BY MOUTH?HAS BEN ON SERQUAL FOSCAND YEARS THEN IT WANT GENERIC
     Route: 048
  2. QUETIAPINE [Suspect]
     Indication: MENTAL RETARDATION
     Dosage: 300MG 2 TABS AT 800PM BY MOUTH?HAS BEN ON SERQUAL FOSCAND YEARS THEN IT WANT GENERIC
     Route: 048

REACTIONS (5)
  - Hallucination [None]
  - Irritability [None]
  - Condition aggravated [None]
  - Aggression [None]
  - Product substitution issue [None]
